FAERS Safety Report 11933202 (Version 1)
Quarter: 2016Q1

REPORT INFORMATION
  Report Type: Spontaneous
  Country: US (occurrence: US)
  Receive Date: 20160121
  Receipt Date: 20160121
  Transmission Date: 20160526
  Serious: No
  Sender: FDA-Public Use
  Company Number: US-TEVA-609405USA

PATIENT
  Sex: Female

DRUGS (2)
  1. SALBUTAMOL [Suspect]
     Active Substance: ALBUTEROL
     Route: 065
  2. BROVANA [Suspect]
     Active Substance: ARFORMOTEROL TARTRATE
     Route: 055
     Dates: start: 201510

REACTIONS (1)
  - Tremor [Unknown]

NARRATIVE: CASE EVENT DATE: 201510
